FAERS Safety Report 5031743-7 (Version None)
Quarter: 2006Q2

REPORT INFORMATION
  Report Type: 
  Country: None (occurrence: None)
  Receive Date: 20060616
  Receipt Date: 20060607
  Transmission Date: 20061013
  Serious: Yes (Other)
  Sender: FDA-Public Use
  Company Number: L06-USA-02198-01

PATIENT
  Age: 36 Year
  Sex: Female

DRUGS (2)
  1. CITALOPRAM [Suspect]
     Dosage: 1000 MG ONCE PO
     Route: 048
  2. ALCOHOL [Suspect]
     Dosage: 1892.7 ML ONCE PO
     Route: 048

REACTIONS (14)
  - ASTHENIA [None]
  - BLOOD MAGNESIUM INCREASED [None]
  - BLOOD PRESSURE DECREASED [None]
  - BODY TEMPERATURE INCREASED [None]
  - CARDIAC ARREST [None]
  - ELECTROCARDIOGRAM QT CORRECTED INTERVAL PROLONGED [None]
  - EXTRASYSTOLES [None]
  - HEART RATE INCREASED [None]
  - HYPOAESTHESIA [None]
  - LETHARGY [None]
  - NAUSEA [None]
  - OVERDOSE [None]
  - PALPITATIONS [None]
  - TORSADE DE POINTES [None]
